FAERS Safety Report 24331995 (Version 14)
Quarter: 2025Q4

REPORT INFORMATION
  Report Type: Spontaneous
  Country: GB (occurrence: CA)
  Receive Date: 20240918
  Receipt Date: 20251226
  Transmission Date: 20260118
  Serious: Yes (Other)
  Sender: ALEXION PHARMACEUTICALS
  Company Number: 2024A212918

PATIENT
  Age: 53 Year
  Sex: Male

DRUGS (39)
  1. BUDESONIDE [Suspect]
     Active Substance: BUDESONIDE
     Dosage: 8 DOSAGE FORM, Q8WEEKS
     Route: 065
  2. BUDESONIDE [Suspect]
     Active Substance: BUDESONIDE
     Dosage: 4 DOSAGE FORM
     Route: 065
  3. BUDESONIDE [Suspect]
     Active Substance: BUDESONIDE
     Dosage: 1 DOSAGE FORM, QD
     Route: 065
  4. BUDESONIDE [Suspect]
     Active Substance: BUDESONIDE
     Dosage: UNK
     Route: 065
  5. BUDESONIDE [Suspect]
     Active Substance: BUDESONIDE
     Dosage: UNK
     Route: 065
  6. BUDESONIDE [Suspect]
     Active Substance: BUDESONIDE
     Dosage: UNK, QD
     Route: 065
  7. BUDESONIDE [Suspect]
     Active Substance: BUDESONIDE
     Dosage: UNK, Q8WEEKS
     Route: 065
  8. BUDESONIDE [Suspect]
     Active Substance: BUDESONIDE
     Dosage: UNK
     Route: 065
  9. ASTRAZENECA COVID-19 VACCINE [Suspect]
     Active Substance: AZD-1222
     Indication: COVID-19 immunisation
     Dosage: UNK
     Route: 065
  10. ASTRAZENECA COVID-19 VACCINE [Suspect]
     Active Substance: AZD-1222
     Dosage: 1 MILLILITER
     Route: 065
  11. DAPAGLIFLOZIN [Suspect]
     Active Substance: DAPAGLIFLOZIN
     Dosage: UNK
     Route: 065
  12. NEXIUM 24HR [Suspect]
     Active Substance: ESOMEPRAZOLE MAGNESIUM
     Dosage: UNK
     Route: 065
  13. CRESTOR [Suspect]
     Active Substance: ROSUVASTATIN CALCIUM
     Dosage: 10 MILLIGRAM
     Route: 065
  14. AZD-1222 [Suspect]
     Active Substance: AZD-1222
     Dosage: 0.5 MILLILITER
     Route: 065
  15. AZD-1222 [Suspect]
     Active Substance: AZD-1222
     Dosage: 1 MILLIMETRE
     Route: 065
  16. FELODIPINE [Suspect]
     Active Substance: FELODIPINE
     Dosage: UNK
     Route: 061
  17. FELODIPINE [Suspect]
     Active Substance: FELODIPINE
     Dosage: 5 MILLIGRAM, QD
     Route: 061
  18. FELODIPINE [Suspect]
     Active Substance: FELODIPINE
     Dosage: 2.5 MILLIGRAM
     Route: 061
  19. FELODIPINE [Suspect]
     Active Substance: FELODIPINE
     Dosage: 2.5 MILLIGRAM
     Route: 061
  20. FELODIPINE [Suspect]
     Active Substance: FELODIPINE
     Dosage: 3 MILLIGRAM
     Route: 061
  21. OMEPRAZOLE [Suspect]
     Active Substance: OMEPRAZOLE
     Dosage: 20 MG
     Route: 065
  22. CANDESARTAN CILEXETIL [Suspect]
     Active Substance: CANDESARTAN CILEXETIL
     Dosage: UNK
     Route: 061
  23. METFORMIN [Suspect]
     Active Substance: METFORMIN HYDROCHLORIDE
     Indication: Product used for unknown indication
     Dosage: 500 MILLIGRAM
     Route: 065
  24. RAMIPRIL [Suspect]
     Active Substance: RAMIPRIL
     Indication: Product used for unknown indication
     Dosage: UNK
     Route: 065
  25. ESOMEPRAZOLE [Suspect]
     Active Substance: ESOMEPRAZOLE
     Indication: Gastritis
     Dosage: UNK
     Route: 065
  26. ASPIRIN [Suspect]
     Active Substance: ASPIRIN
     Indication: Product used for unknown indication
     Dosage: UNK
     Route: 065
  27. CANDESARTAN [Suspect]
     Active Substance: CANDESARTAN
     Indication: Product used for unknown indication
     Dosage: UNK
     Route: 065
  28. CANDESARTAN [Suspect]
     Active Substance: CANDESARTAN
     Indication: Product used for unknown indication
     Route: 061
  29. ASPIRIN [Suspect]
     Active Substance: ASPIRIN
     Dosage: UNK
  30. PULMICORT TURBUHALER [Suspect]
     Active Substance: BUDESONIDE
     Indication: Colitis ulcerative
     Dosage: DOSAGE TEXT: 8 DOSAGE FORM, FREQUENCY : 1, THERAPY END DATE : NOT ASKED, FREQUENCY TIME : 8 WEEKS
     Route: 061
     Dates: start: 200707
  31. PULMICORT TURBUHALER [Suspect]
     Active Substance: BUDESONIDE
     Indication: Colitis ulcerative
     Dosage: 1 DF, QD
     Route: 061
  32. OMEPRAZOLE [Concomitant]
     Active Substance: OMEPRAZOLE
     Indication: Product used for unknown indication
  33. OMEPRAZOLE [Concomitant]
     Active Substance: OMEPRAZOLE
  34. RAMIPRIL [Concomitant]
     Active Substance: RAMIPRIL
     Indication: Product used for unknown indication
  35. RAMIPRIL [Concomitant]
     Active Substance: RAMIPRIL
  36. DAPAGLIFLOZIN [Concomitant]
     Active Substance: DAPAGLIFLOZIN
     Indication: Product used for unknown indication
  37. DAPAGLIFLOZIN [Concomitant]
     Active Substance: DAPAGLIFLOZIN
  38. ROSUVASTATIN [Suspect]
     Active Substance: ROSUVASTATIN
     Route: 065
  39. ROSUVASTATIN [Suspect]
     Active Substance: ROSUVASTATIN
     Route: 065

REACTIONS (37)
  - Arthritis [Not Recovered/Not Resolved]
  - Bronchiectasis [Not Recovered/Not Resolved]
  - Burns second degree [Not Recovered/Not Resolved]
  - COVID-19 [Not Recovered/Not Resolved]
  - Cardiac murmur [Not Recovered/Not Resolved]
  - Catarrh [Not Recovered/Not Resolved]
  - Cerebrovascular accident [Not Recovered/Not Resolved]
  - Colitis ulcerative [Unknown]
  - Deep vein thrombosis [Unknown]
  - Depression [Not Recovered/Not Resolved]
  - Dysgeusia [Not Recovered/Not Resolved]
  - Eczema [Not Recovered/Not Resolved]
  - Fatigue [Not Recovered/Not Resolved]
  - Frequent bowel movements [Not Recovered/Not Resolved]
  - Gingival pain [Not Recovered/Not Resolved]
  - Haematochezia [Not Recovered/Not Resolved]
  - Headache [Not Recovered/Not Resolved]
  - Hypopnoea [Not Recovered/Not Resolved]
  - Migraine [Not Recovered/Not Resolved]
  - Nightmare [Not Recovered/Not Resolved]
  - Palpitations [Not Recovered/Not Resolved]
  - Parosmia [Not Recovered/Not Resolved]
  - Pulmonary embolism [Not Recovered/Not Resolved]
  - Pyrexia [Not Recovered/Not Resolved]
  - Rash [Not Recovered/Not Resolved]
  - Rectal haemorrhage [Not Recovered/Not Resolved]
  - Rhinitis [Not Recovered/Not Resolved]
  - Somnolence [Not Recovered/Not Resolved]
  - Steroid dependence [Not Recovered/Not Resolved]
  - Stress [Not Recovered/Not Resolved]
  - Swollen tongue [Not Recovered/Not Resolved]
  - Systemic lupus erythematosus [Not Recovered/Not Resolved]
  - Tinnitus [Not Recovered/Not Resolved]
  - Tubulointerstitial nephritis [Not Recovered/Not Resolved]
  - Vertigo [Not Recovered/Not Resolved]
  - Weight decreased [Not Recovered/Not Resolved]
  - Loss of personal independence in daily activities [Not Recovered/Not Resolved]
